FAERS Safety Report 10192930 (Version 3)
Quarter: 2014Q2

REPORT INFORMATION
  Report Type: Report from Study
  Country: CA (occurrence: CA)
  Receive Date: 20140523
  Receipt Date: 20140528
  Transmission Date: 20141212
  Serious: Yes (Other)
  Sender: FDA-Public Use
  Company Number: CA-ABBVIE-14P-028-1224591-00

PATIENT
  Age: 56 Year
  Sex: Female
  Weight: 82.63 kg

DRUGS (8)
  1. HUMIRA [Suspect]
     Indication: CROHN^S DISEASE
     Route: 058
     Dates: start: 20140320
  2. AZATHIOPRINE [Suspect]
     Indication: CROHN^S DISEASE
     Route: 048
     Dates: start: 20140115, end: 20140327
  3. PREDNISONE [Concomitant]
     Indication: CROHN^S DISEASE
     Route: 048
     Dates: start: 20131219
  4. PREDNISONE [Concomitant]
     Route: 048
  5. STATEX [Concomitant]
     Indication: BACK PAIN
     Dosage: AS NEEDED
     Route: 048
  6. MORPHINE SR [Concomitant]
     Indication: BACK PAIN
     Route: 048
  7. CRESTOR [Concomitant]
     Indication: LIPIDS INCREASED
     Dosage: AT BEDTIME
     Route: 048
  8. PERCOCET [Concomitant]
     Indication: PAIN
     Route: 048

REACTIONS (6)
  - Adrenal insufficiency [Unknown]
  - Vomiting [Recovering/Resolving]
  - Nausea [Recovering/Resolving]
  - Headache [Recovering/Resolving]
  - Back pain [Recovering/Resolving]
  - Abdominal pain [Recovering/Resolving]
